FAERS Safety Report 7781803-2 (Version None)
Quarter: 2011Q3

REPORT INFORMATION
  Report Type: 
  Country: None (occurrence: None)
  Receive Date: 20110927
  Receipt Date: 20110920
  Transmission Date: 20111222
  Serious: Yes (Hospitalization)
  Sender: FDA-Public Use
  Company Number: JP-GLAXOSMITHKLINE-B0749717A

PATIENT
  Age: 87 Year
  Sex: Female
  Weight: 53 kg

DRUGS (1)
  1. VALTREX [Suspect]
     Indication: PRODUCT USED FOR UNKNOWN INDICATION
     Route: 048
     Dates: start: 20110912, end: 20110916

REACTIONS (2)
  - GAIT DISTURBANCE [None]
  - DYSARTHRIA [None]
